FAERS Safety Report 25069204 (Version 4)
Quarter: 2025Q2

REPORT INFORMATION
  Report Type: Spontaneous
  Country: CA (occurrence: CA)
  Receive Date: 20250312
  Receipt Date: 20250602
  Transmission Date: 20250716
  Serious: Yes (Other)
  Sender: PFIZER
  Company Number: CA-PFIZER INC-202500039324

PATIENT
  Age: 21 Year
  Sex: Female

DRUGS (2)
  1. ABRILADA [Suspect]
     Active Substance: ADALIMUMAB-AFZB
     Indication: Crohn^s disease
     Dosage: 40 MG, WEEKLY
     Route: 058
     Dates: start: 20220322, end: 2024
  2. ABRILADA [Suspect]
     Active Substance: ADALIMUMAB-AFZB
     Route: 058
     Dates: start: 2024

REACTIONS (9)
  - Appendicitis [Recovered/Resolved]
  - Knee operation [Unknown]
  - Anal abscess [Recovering/Resolving]
  - Abdominal pain lower [Recovered/Resolved]
  - Noninfective gingivitis [Unknown]
  - Fistula [Unknown]
  - Anorectal disorder [Unknown]
  - Fatigue [Unknown]
  - Arthralgia [Unknown]

NARRATIVE: CASE EVENT DATE: 20250101
